FAERS Safety Report 8012309-3 (Version None)
Quarter: 2011Q4

REPORT INFORMATION
  Report Type: 
  Country: None (occurrence: None)
  Receive Date: 20111228
  Receipt Date: 20111219
  Transmission Date: 20120403
  Serious: Yes (Other)
  Sender: FDA-Public Use
  Company Number: US-ASTRAZENECA-2011SE77161

PATIENT
  Age: 51 Year
  Sex: Female
  Weight: 86.2 kg

DRUGS (9)
  1. LUNESTA [Concomitant]
  2. CRESTOR [Suspect]
     Indication: BLOOD CHOLESTEROL INCREASED
     Route: 048
  3. OMEPRAZOLE [Concomitant]
  4. HYDROXIPAM [Concomitant]
  5. LEXAPRO [Concomitant]
  6. VITAMIN D [Concomitant]
  7. NEXIUM [Suspect]
     Indication: GASTRIC DISORDER
     Route: 048
  8. LEVOTHYROXINE SODIUM [Concomitant]
  9. CLONAZEPAM [Concomitant]

REACTIONS (7)
  - CONTUSION [None]
  - ABDOMINAL DISCOMFORT [None]
  - PHYSICAL ASSAULT [None]
  - ASPHYXIA [None]
  - WEIGHT INCREASED [None]
  - LOSS OF CONSCIOUSNESS [None]
  - HAEMORRHAGE [None]
